FAERS Safety Report 8713410 (Version 4)
Quarter: 2013Q4

REPORT INFORMATION
  Report Type: Spontaneous
  Country: JP (occurrence: JP)
  Receive Date: 20120808
  Receipt Date: 20131231
  Transmission Date: 20140711
  Serious: Yes (Hospitalization)
  Sender: FDA-Public Use
  Company Number: JP-GLAXOSMITHKLINE-B0669827A

PATIENT
  Age: 70 Year
  Sex: Female

DRUGS (6)
  1. LAMICTAL [Suspect]
     Indication: EPILEPSY
     Dosage: 25MG ALTERNATE DAYS
     Route: 048
     Dates: start: 20100510
  2. LAMICTAL [Suspect]
     Indication: EPILEPSY
     Dosage: 25MG TWICE PER DAY
     Route: 048
  3. LAMICTAL [Suspect]
     Indication: EPILEPSY
     Route: 048
  4. DEPAKENE [Suspect]
     Indication: EPILEPSY
     Dosage: 500MG TWICE PER DAY
     Route: 048
     Dates: start: 20100507
  5. TEGRETOL [Concomitant]
     Indication: EPILEPSY
     Dosage: 150MG TWICE PER DAY
     Route: 048
     Dates: start: 20100707, end: 20100813
  6. MYSTAN [Concomitant]
     Indication: EPILEPSY
     Dosage: 7MG THREE TIMES PER DAY
     Route: 048
     Dates: start: 20100715, end: 20100831

REACTIONS (16)
  - Drug reaction with eosinophilia and systemic symptoms [Recovered/Resolved]
  - Rash generalised [Unknown]
  - Pyrexia [Recovering/Resolving]
  - Generalised erythema [Unknown]
  - Perianal erythema [Unknown]
  - Anal erosion [Unknown]
  - Anal haemorrhage [Unknown]
  - Rash [Recovering/Resolving]
  - Lymphocyte stimulation test positive [Unknown]
  - White blood cell count increased [Unknown]
  - Human herpes virus 6 serology positive [Unknown]
  - Gamma-glutamyltransferase increased [Unknown]
  - Pruritus [Unknown]
  - Face oedema [Unknown]
  - Malaise [Unknown]
  - Eosinophil count increased [Unknown]
